FAERS Safety Report 16725781 (Version 1)
Quarter: 2019Q3

REPORT INFORMATION
  Report Type: Report from Study
  Country: US (occurrence: US)
  Receive Date: 20190821
  Receipt Date: 20190821
  Transmission Date: 20191005
  Serious: Yes (Hospitalization)
  Sender: FDA-Public Use
  Company Number: PHEH2019US034168

PATIENT
  Sex: Female

DRUGS (1)
  1. GILENYA [Suspect]
     Active Substance: FINGOLIMOD HYDROCHLORIDE
     Indication: MULTIPLE SCLEROSIS
     Dosage: 0.5 MG, QD
     Route: 048
     Dates: start: 20190413

REACTIONS (11)
  - Arthralgia [Unknown]
  - Headache [Unknown]
  - Weight decreased [Unknown]
  - Tendonitis [Unknown]
  - Depression [Unknown]
  - Hypometabolism [Unknown]
  - Fatigue [Unknown]
  - Toothache [Recovered/Resolved]
  - Gingival pain [Recovered/Resolved]
  - Platelet count decreased [Unknown]
  - White blood cell count decreased [Unknown]
